FAERS Safety Report 18252187 (Version 1)
Quarter: 2020Q3

REPORT INFORMATION
  Report Type: Spontaneous
  Country: US (occurrence: US)
  Receive Date: 20200910
  Receipt Date: 20200910
  Transmission Date: 20201103
  Serious: No
  Sender: FDA-Public Use
  Company Number: US-FARMAPROD-202005-0666

PATIENT
  Sex: Male

DRUGS (5)
  1. TIMOLOL MALEATE. [Concomitant]
     Active Substance: TIMOLOL MALEATE
  2. LOTEMAX [Concomitant]
     Active Substance: LOTEPREDNOL ETABONATE
  3. OXERVATE [Suspect]
     Active Substance: CENEGERMIN-BKBJ
     Indication: NEUROTROPHIC KERATOPATHY
     Route: 047
     Dates: start: 20200309
  4. ZIRGAN [Concomitant]
     Active Substance: GANCICLOVIR
  5. OFLOXACIN. [Concomitant]
     Active Substance: OFLOXACIN

REACTIONS (2)
  - Headache [Unknown]
  - Eye pain [Unknown]
